FAERS Safety Report 23956492 (Version 1)
Quarter: 2024Q2

REPORT INFORMATION
  Report Type: Spontaneous
  Country: GB (occurrence: GB)
  Receive Date: 20240610
  Receipt Date: 20240610
  Transmission Date: 20240716
  Serious: Yes (Other)
  Sender: FDA-Public Use
  Company Number: None

PATIENT
  Sex: Female
  Weight: 90 kg

DRUGS (2)
  1. CLARITHROMYCIN [Suspect]
     Active Substance: CLARITHROMYCIN
     Indication: Streptococcal infection
     Dosage: 500MG TWICE A DAY, TWELVE HOURS APART
     Route: 065
     Dates: start: 20240528
  2. QUETIAPINE [Concomitant]
     Active Substance: QUETIAPINE

REACTIONS (8)
  - Amnesia [Recovered/Resolved with Sequelae]
  - Dizziness [Recovering/Resolving]
  - Abdominal pain upper [Recovered/Resolved]
  - Abdominal distension [Recovering/Resolving]
  - Flatulence [Recovered/Resolved]
  - Fatigue [Recovering/Resolving]
  - Taste disorder [Recovered/Resolved]
  - Nightmare [Recovering/Resolving]
